FAERS Safety Report 19622679 (Version 2)
Quarter: 2021Q3

REPORT INFORMATION
  Report Type: Spontaneous
  Country: CA (occurrence: CA)
  Receive Date: 20210728
  Receipt Date: 20210823
  Transmission Date: 20211014
  Serious: Yes (Other)
  Sender: FDA-Public Use
  Company Number: CA-ORION CORPORATION ORION PHARMA-20_00009936

PATIENT
  Age: 56 Year
  Sex: Female
  Weight: 85.6 kg

DRUGS (6)
  1. METHOTREXATE (TRADE NAME UNKNOWN) [Suspect]
     Active Substance: METHOTREXATE
     Indication: RHEUMATOID ARTHRITIS
     Route: 048
     Dates: start: 2002
  2. LEFLUNOMIDE. [Concomitant]
     Active Substance: LEFLUNOMIDE
     Route: 048
  3. CELEBREX [Concomitant]
     Active Substance: CELECOXIB
     Route: 065
  4. CELEBREX [Concomitant]
     Active Substance: CELECOXIB
     Dosage: 100?200 MG
     Route: 065
  5. EXTRA STRENGTH TYLENOL PM [Concomitant]
     Active Substance: ACETAMINOPHEN\DIPHENHYDRAMINE HYDROCHLORIDE
     Dosage: AS NEEDED (FREQUENTLY)
     Route: 065
  6. XELJANZ [Concomitant]
     Active Substance: TOFACITINIB CITRATE
     Indication: RHEUMATOID ARTHRITIS
     Route: 048
     Dates: start: 20200717, end: 2021

REACTIONS (4)
  - Drug ineffective [Unknown]
  - COVID-19 [Unknown]
  - Fatigue [Unknown]
  - Joint stiffness [Unknown]
